FAERS Safety Report 10863282 (Version 1)
Quarter: 2015Q1

REPORT INFORMATION
  Report Type: Spontaneous
  Country: KR (occurrence: KR)
  Receive Date: 20150224
  Receipt Date: 20150224
  Transmission Date: 20150721
  Serious: Yes (Hospitalization, Other)
  Sender: FDA-Public Use
  Company Number: KR-GILEAD-2014-0107339

PATIENT
  Age: 44 Year
  Sex: Female

DRUGS (1)
  1. VIREAD [Suspect]
     Active Substance: TENOFOVIR DISOPROXIL FUMARATE
     Indication: HEPATITIS B
     Dosage: 300 MG, QD
     Route: 065

REACTIONS (5)
  - Renal tubular necrosis [Unknown]
  - Nephrotic syndrome [Unknown]
  - Tubulointerstitial nephritis [Unknown]
  - Fanconi syndrome acquired [Recovered/Resolved]
  - IgA nephropathy [Unknown]

NARRATIVE: CASE EVENT DATE: 20140616
